FAERS Safety Report 6483011-4 (Version None)
Quarter: 2009Q4

REPORT INFORMATION
  Report Type: 
  Country: None (occurrence: None)
  Receive Date: 20091209
  Receipt Date: 20091204
  Transmission Date: 20100525
  Serious: Yes (Hospitalization)
  Sender: FDA-Public Use
  Company Number: JP-SANOFI-AVENTIS-2009SA002783

PATIENT
  Age: 52 Year
  Sex: Female

DRUGS (7)
  1. ARAVA [Suspect]
     Indication: RHEUMATOID ARTHRITIS
     Route: 048
     Dates: start: 20090101, end: 20090501
  2. ARAVA [Suspect]
     Route: 048
     Dates: start: 20040529, end: 20040531
  3. ARAVA [Suspect]
     Route: 048
     Dates: start: 20040601, end: 20090101
  4. D ALFA [Concomitant]
     Indication: OSTEOPOROSIS
     Dosage: 1 CAPSULE PER DAY
     Route: 048
  5. PREDONINE [Concomitant]
     Indication: RHEUMATOID ARTHRITIS
     Dosage: 1 TABLET PER DAY
     Route: 048
  6. DICLOFENAC SODIUM [Concomitant]
     Dosage: 2 CAPSULES PER DAY
     Route: 048
  7. CYTOTEC [Concomitant]
     Indication: GASTRITIS
     Dosage: 2 TABLETS PER DAY
     Route: 048

REACTIONS (2)
  - COLITIS ULCERATIVE [None]
  - DIARRHOEA [None]
